FAERS Safety Report 5465590-9 (Version None)
Quarter: 2007Q3

REPORT INFORMATION
  Report Type: 
  Country: None (occurrence: None)
  Receive Date: 20070919
  Receipt Date: 20070919
  Transmission Date: 20080115
  Serious: Yes (Hospitalization)
  Sender: FDA-Public Use
  Company Number: None

PATIENT
  Sex: Male
  Weight: 77.1115 kg

DRUGS (2)
  1. HUMIRA [Suspect]
     Indication: RHEUMATOID ARTHRITIS
     Dosage: 40MG/0.8ML Q 2 WEEKS SQ
     Route: 058
     Dates: start: 20070401, end: 20070831
  2. ARAVA [Concomitant]

REACTIONS (2)
  - HEMIPLEGIA [None]
  - PNEUMONIA [None]
